FAERS Safety Report 6749063-9 (Version None)
Quarter: 2010Q2

REPORT INFORMATION
  Report Type: 
  Country: None (occurrence: None)
  Receive Date: 20100601
  Receipt Date: 20100525
  Transmission Date: 20101027
  Serious: Yes (Death)
  Sender: FDA-Public Use
  Company Number: CHPA2010CA09143

PATIENT
  Age: 42 Year
  Sex: Female

DRUGS (2)
  1. TRANSDERM VOYAGER [Suspect]
     Indication: NAUSEA
     Dosage: 1 DF, Q72H
     Route: 062
  2. HYDROMORPHONE HCL [Suspect]
     Indication: LUNG NEOPLASM MALIGNANT
     Dosage: UNK, UNK

REACTIONS (7)
  - COGNITIVE DISORDER [None]
  - CONDITION AGGRAVATED [None]
  - DISTURBANCE IN ATTENTION [None]
  - DRY MOUTH [None]
  - LUNG NEOPLASM MALIGNANT [None]
  - MEMORY IMPAIRMENT [None]
  - VISION BLURRED [None]
